FAERS Safety Report 8833326 (Version 1)
Quarter: 2012Q4

REPORT INFORMATION
  Report Type: Report from Study
  Country: US (occurrence: US)
  Receive Date: 20121010
  Receipt Date: 20121010
  Transmission Date: 20130627
  Serious: No
  Sender: FDA-Public Use
  Company Number: US-VERTEX PHARMACEUTICAL INC.-2012-022436

PATIENT

DRUGS (1)
  1. VX-950 [Suspect]
     Indication: HEPATITIS C
     Route: 048

REACTIONS (2)
  - Drug intolerance [Unknown]
  - Anaemia [Unknown]
